FAERS Safety Report 7280683-1 (Version None)
Quarter: 2011Q1

REPORT INFORMATION
  Report Type: 
  Country: None (occurrence: None)
  Receive Date: 20110208
  Receipt Date: 20110131
  Transmission Date: 20110831
  Serious: Yes (Death, Life-Threatening, Hospitalization)
  Sender: FDA-Public Use
  Company Number: A0912055A

PATIENT
  Age: 76 Year
  Sex: Male

DRUGS (10)
  1. SYMBICORT [Concomitant]
  2. AUGMENTIN '125' [Suspect]
     Route: 065
  3. NIACIN [Suspect]
     Route: 065
  4. LASIX [Concomitant]
  5. SOTALOL HCL [Concomitant]
     Indication: ATRIAL FIBRILLATION
     Dates: end: 20100709
  6. DIURETIC [Suspect]
     Route: 065
  7. LOPRESSOR [Concomitant]
  8. PRILOSEC [Concomitant]
  9. MULTAQ [Suspect]
     Indication: ATRIAL FIBRILLATION
     Dosage: 400MG TWICE PER DAY
     Route: 048
     Dates: start: 20100706, end: 20100701
  10. FLONASE [Concomitant]

REACTIONS (27)
  - RESPIRATORY FAILURE [None]
  - PNEUMONIA [None]
  - NAUSEA [None]
  - VOMITING [None]
  - HAEMATEMESIS [None]
  - GALLBLADDER OEDEMA [None]
  - CHRONIC OBSTRUCTIVE PULMONARY DISEASE [None]
  - CHOLESTASIS [None]
  - LIVER DISORDER [None]
  - JAUNDICE CHOLESTATIC [None]
  - RENAL FAILURE CHRONIC [None]
  - ATRIAL FLUTTER [None]
  - JAUNDICE [None]
  - RENAL FAILURE ACUTE [None]
  - CHOLANGITIS SCLEROSING [None]
  - MULTI-ORGAN FAILURE [None]
  - HEPATIC FIBROSIS [None]
  - GALLBLADDER NECROSIS [None]
  - DIZZINESS [None]
  - DEHYDRATION [None]
  - POST PROCEDURAL SEPSIS [None]
  - HEPATIC FUNCTION ABNORMAL [None]
  - ATRIAL FIBRILLATION [None]
  - CHOLECYSTITIS ACUTE [None]
  - HEPATIC ENZYME INCREASED [None]
  - BLOOD BILIRUBIN INCREASED [None]
  - CHOLECYSTITIS CHRONIC [None]
